FAERS Safety Report 6250341-0 (Version None)
Quarter: 2009Q2

REPORT INFORMATION
  Report Type: 
  Country: None (occurrence: None)
  Receive Date: 20090626
  Receipt Date: 20090626
  Transmission Date: 20091009
  Serious: No
  Sender: FDA-Public Use
  Company Number: None

PATIENT
  Age: 52 Year
  Sex: Female
  Weight: 79.3795 kg

DRUGS (2)
  1. ELOXATIN [Suspect]
     Indication: COLON CANCER
     Dosage: EVERY 2 WKKS IV DRIP, 12 TREATMENTS
     Route: 041
     Dates: start: 20090101, end: 20090101
  2. ELOXATIN [Suspect]
     Indication: COLON CANCER
     Dosage: EVERY 2 WKKS IV DRIP, 12 TREATMENTS
     Route: 041
     Dates: start: 20081001, end: 20090322

REACTIONS (4)
  - BALANCE DISORDER [None]
  - FEELING COLD [None]
  - HYPOAESTHESIA [None]
  - ORAL PAIN [None]
